FAERS Safety Report 7156834-6 (Version None)
Quarter: 2010Q4

REPORT INFORMATION
  Report Type: 
  Country: None (occurrence: None)
  Receive Date: 20101129
  Receipt Date: 20101109
  Transmission Date: 20110411
  Serious: Yes (Other)
  Sender: FDA-Public Use
  Company Number: 10-0772

PATIENT
  Sex: Female
  Weight: 56.6996 kg

DRUGS (2)
  1. AZO STANDARD 95 MG [Suspect]
     Indication: URINARY TRACT INFECTION
     Dosage: 2 TABS, 3 TIMES PER DAU
     Dates: start: 20101109
  2. SYNTHROID [Concomitant]

REACTIONS (6)
  - CONTUSION [None]
  - FACE INJURY [None]
  - FREQUENT BOWEL MOVEMENTS [None]
  - LOSS OF CONSCIOUSNESS [None]
  - MIGRAINE [None]
  - VOMITING [None]
